FAERS Safety Report 4981143-0 (Version None)
Quarter: 2006Q1

REPORT INFORMATION
  Report Type: 
  Country: None (occurrence: None)
  Receive Date: 20060227
  Receipt Date: 20050719
  Transmission Date: 20060701
  Serious: Yes (Hospitalization, Disabling, Other)
  Sender: FDA-Public Use
  Company Number: WAES 0507USA03167

PATIENT
  Age: 83 Year
  Sex: Female
  Weight: 76.6579 kg

DRUGS (9)
  1. ZOCOR [Suspect]
     Indication: HYPERLIPIDAEMIA
     Dosage: 40 MG HS PO
     Route: 048
     Dates: start: 20041204, end: 20041226
  2. TAB BIAXIN 500 MG [Suspect]
     Dosage: 500 MG BID PO
     Route: 048
     Dates: start: 20041206, end: 20041221
  3. TAB AMIODARONE MSD 600 MG [Suspect]
     Indication: ATRIAL FIBRILLATION
     Dosage: 600 MG HS PO
     Route: 048
     Dates: start: 20041204, end: 20041206
  4. LANOXIN [Concomitant]
  5. ZITHROMAX [Concomitant]
  6. FERROUS SULFATE TAB [Concomitant]
  7. METOPROLOL TARTRATE [Concomitant]
  8. SOTALOL HCL [Concomitant]
  9. WARFARIN SODIUM [Concomitant]

REACTIONS (2)
  - RENAL FAILURE [None]
  - RHABDOMYOLYSIS [None]
